FAERS Safety Report 16973011 (Version 3)
Quarter: 2019Q4

REPORT INFORMATION
  Report Type: Spontaneous
  Country: JP (occurrence: JP)
  Receive Date: 20191030
  Receipt Date: 20191202
  Transmission Date: 20200122
  Serious: Yes (Hospitalization, Other)
  Sender: FDA-Public Use
  Company Number: JP-SAKK-2019SA294819AA

PATIENT
  Age: 55 Year
  Sex: Male

DRUGS (2)
  1. ASPIRIN (E.C.) [Concomitant]
     Active Substance: ASPIRIN
     Indication: CEREBRAL INFARCTION
     Dosage: DAILY DOSE: 100 MG
     Route: 048
     Dates: start: 201712
  2. PLAVIX [Suspect]
     Active Substance: CLOPIDOGREL BISULFATE
     Indication: THALAMIC INFARCTION
     Dosage: DAILY DOSE: 75 MG
     Route: 048
     Dates: start: 201612

REACTIONS (3)
  - Arachnoid web [Unknown]
  - Therapeutic product effect incomplete [Unknown]
  - Cerebral infarction [Unknown]
